FAERS Safety Report 5276414-7 (Version None)
Quarter: 2007Q1

REPORT INFORMATION
  Report Type: 
  Country: None (occurrence: None)
  Receive Date: 20061213
  Receipt Date: 20030930
  Transmission Date: 20070707
  Serious: Yes (Hospitalization)
  Sender: FDA-Public Use
  Company Number: 2003UW12559

PATIENT
  Age: 55 Year
  Sex: Male

DRUGS (4)
  1. SEROQUEL [Suspect]
     Dosage: 600 MG PO
     Route: 048
  2. TRILEPTAL [Concomitant]
  3. PERCOCET [Concomitant]
  4. NEURONTIN [Concomitant]

REACTIONS (4)
  - BLOOD CREATINE PHOSPHOKINASE INCREASED [None]
  - CONFUSIONAL STATE [None]
  - NEUROLEPTIC MALIGNANT SYNDROME [None]
  - PYREXIA [None]
